FAERS Safety Report 19355200 (Version 5)
Quarter: 2021Q3

REPORT INFORMATION
  Report Type: Report from Study
  Country: BR (occurrence: BR)
  Receive Date: 20210531
  Receipt Date: 20210901
  Transmission Date: 20211014
  Serious: Yes (Hospitalization, Other)
  Sender: FDA-Public Use
  Company Number: PHHY2013BR074587

PATIENT
  Age: 49 Year
  Sex: Female
  Weight: 70 kg

DRUGS (29)
  1. XOLAIR [Suspect]
     Active Substance: OMALIZUMAB
     Dosage: UNK
     Route: 065
     Dates: start: 20210713
  2. INFLUENZA VACCINE [Suspect]
     Active Substance: INFLUENZA VIRUS VACCINE
     Indication: PRODUCT USED FOR UNKNOWN INDICATION
     Dosage: UNK UNK, UNKNOWN
     Route: 065
  3. GLIFAGE [Concomitant]
     Active Substance: METFORMIN HYDROCHLORIDE
     Indication: DIABETES MELLITUS
     Dosage: 1 DF, QD (SINCE 2 YEARS)
     Route: 048
  4. XOLAIR [Suspect]
     Active Substance: OMALIZUMAB
     Dosage: 2 DF (AMPOULES)
     Route: 058
     Dates: start: 20170713
  5. ZETIA [Concomitant]
     Active Substance: EZETIMIBE
     Indication: BLOOD CHOLESTEROL INCREASED
     Dosage: 1 DF, QD
     Route: 048
  6. XOLAIR [Suspect]
     Active Substance: OMALIZUMAB
     Dosage: UNK
     Route: 058
     Dates: start: 20190620
  7. XOLAIR [Suspect]
     Active Substance: OMALIZUMAB
     Dosage: UNK
     Route: 065
     Dates: start: 20210619
  8. ALENIA [Concomitant]
     Indication: ASTHMA
     Dosage: 2 DF (INHALATION), QN (MORE THAN 20 YEARS)
     Route: 055
  9. XOLAIR [Suspect]
     Active Substance: OMALIZUMAB
     Dosage: 300 MG, EVERY 28 DAYS
     Route: 058
     Dates: start: 20180501
  10. XOLAIR [Suspect]
     Active Substance: OMALIZUMAB
     Dosage: 2 DF, EVERY 28 DAYS
     Route: 058
     Dates: start: 20190109
  11. XOLAIR [Suspect]
     Active Substance: OMALIZUMAB
     Dosage: 2 DF, EVERY 28 DAYS
     Route: 058
     Dates: start: 20190213
  12. XOLAIR [Suspect]
     Active Substance: OMALIZUMAB
     Dosage: 2 DF, UNKNOWN
     Route: 058
     Dates: start: 20210518
  13. DIOVAN [Suspect]
     Active Substance: VALSARTAN
     Indication: HYPERTENSION
     Dosage: 1 DF, QD
     Route: 048
     Dates: start: 2020
  14. ATORVASTATIN [Suspect]
     Active Substance: ATORVASTATIN
     Indication: BLOOD CHOLESTEROL INCREASED
     Dosage: 1 DF, QD
     Route: 048
  15. CORTISONE [Suspect]
     Active Substance: CORTISONE
     Indication: PRODUCT USED FOR UNKNOWN INDICATION
     Dosage: UNK
     Route: 065
  16. XOLAIR [Suspect]
     Active Substance: OMALIZUMAB
     Dosage: UNK
     Route: 058
     Dates: start: 20170730
  17. ALENIA [Concomitant]
     Dosage: 200 UG, BID
     Route: 055
  18. XOLAIR [Suspect]
     Active Substance: OMALIZUMAB
     Dosage: 2 DF (AMPOULES) EVERY 28 DAYS
     Route: 058
  19. XOLAIR [Suspect]
     Active Substance: OMALIZUMAB
     Dosage: 300 MG, QMO
     Route: 058
  20. ESCITALOPRAM [Suspect]
     Active Substance: ESCITALOPRAM OXALATE
     Dosage: 20 MG, QD(MANY YEARS AGO (COULD NOT SPECIFY))
     Route: 048
  21. SIMVASTATIN. [Concomitant]
     Active Substance: SIMVASTATIN
     Indication: BLOOD CHOLESTEROL ABNORMAL
     Dosage: 1 DF, QD
     Route: 048
  22. XOLAIR [Suspect]
     Active Substance: OMALIZUMAB
     Indication: ASTHMA
     Dosage: 300 MG, QMO
     Route: 058
     Dates: start: 2012
  23. XOLAIR [Suspect]
     Active Substance: OMALIZUMAB
     Dosage: 300 MG, QMO
     Route: 058
     Dates: start: 20181120, end: 20181207
  24. ESCITALOPRAM [Suspect]
     Active Substance: ESCITALOPRAM OXALATE
     Indication: DEPRESSION
     Dosage: 1 DF, OTHER (EVERY OTHER DAY)
     Route: 065
  25. ALENIA [Concomitant]
     Dosage: 2 OR 3 TIMES DAILY
     Route: 065
  26. ALENIA [Concomitant]
     Dosage: 1 PUFF, QD
     Route: 055
  27. SINGULAIR [Concomitant]
     Active Substance: MONTELUKAST SODIUM
     Indication: BRONCHITIS
     Dosage: 1 DF, QD (MORE THAN 20 YEARS)
     Route: 048
  28. ADENOSINA [Concomitant]
     Indication: HYPERTENSION
     Dosage: 1 DF, QD
     Route: 048
     Dates: start: 2020
  29. HIGROTON [Concomitant]
     Active Substance: CHLORTHALIDONE
     Indication: HYPERTHYROIDISM
     Dosage: 1 DF, QD (SINCE 2 YEARS)
     Route: 048

REACTIONS (46)
  - Hypotension [Unknown]
  - Palpitations [Not Recovered/Not Resolved]
  - Asthmatic crisis [Recovered/Resolved]
  - Sluggishness [Recovering/Resolving]
  - Malaise [Recovered/Resolved]
  - Dizziness [Recovering/Resolving]
  - Feeling hot [Not Recovered/Not Resolved]
  - Blood pressure increased [Recovered/Resolved]
  - Bradykinesia [Recovered/Resolved]
  - Injection site pain [Recovering/Resolving]
  - Wrong technique in product usage process [Unknown]
  - Influenza [Recovered/Resolved]
  - Blood pressure increased [Not Recovered/Not Resolved]
  - Heart rate increased [Unknown]
  - Hypertension [Unknown]
  - Weight increased [Recovering/Resolving]
  - Headache [Unknown]
  - Asthma [Recovering/Resolving]
  - Chills [Not Recovered/Not Resolved]
  - Irritability [Unknown]
  - Skin discolouration [Unknown]
  - Cardiac disorder [Recovered/Resolved]
  - Chest pain [Recovering/Resolving]
  - Insomnia [Unknown]
  - Weight decreased [Not Recovered/Not Resolved]
  - Nausea [Unknown]
  - Malaise [Recovered/Resolved]
  - Dyspnoea [Recovered/Resolved]
  - Fatigue [Recovering/Resolving]
  - Feeling abnormal [Recovering/Resolving]
  - Pain in extremity [Not Recovered/Not Resolved]
  - Bone disorder [Not Recovered/Not Resolved]
  - Influenza [Recovered/Resolved]
  - Obstructive airways disorder [Recovered/Resolved]
  - Pain [Recovered/Resolved]
  - Chest discomfort [Not Recovered/Not Resolved]
  - Wheezing [Recovering/Resolving]
  - Mental disorder [Not Recovered/Not Resolved]
  - Loss of consciousness [Recovered/Resolved]
  - Paraesthesia [Recovering/Resolving]
  - Vertigo [Unknown]
  - Asthmatic crisis [Recovered/Resolved]
  - Vomiting [Unknown]
  - Asthma [Recovered/Resolved]
  - Fatigue [Recovered/Resolved]
  - Therapeutic response unexpected [Recovered/Resolved]

NARRATIVE: CASE EVENT DATE: 201305
